FAERS Safety Report 5147293-3 (Version None)
Quarter: 2006Q4

REPORT INFORMATION
  Report Type: 
  Country: None (occurrence: None)
  Receive Date: 20061103
  Receipt Date: 20061013
  Transmission Date: 20070319
  Serious: Yes (Death)
  Sender: FDA-Public Use
  Company Number: TRP_0495_2005

PATIENT
  Age: 46 Year
  Sex: Female
  Weight: 66.2252 kg

DRUGS (17)
  1. RIBASPHERE [Suspect]
     Indication: HEPATITIS C
     Dosage: 1000 MG QDAY PO
     Route: 048
     Dates: start: 20050502, end: 20050621
  2. INFERGEN [Suspect]
     Indication: HEPATITIS C
     Dosage: 15 MCG QDAY SC
     Route: 058
     Dates: start: 20050502, end: 20050621
  3. XANAX [Concomitant]
  4. VITAMIN CAP [Concomitant]
  5. GREEN TEA [Concomitant]
  6. MILK THISTLE [Concomitant]
  7. CALCIUM MAGNESIUM ZINC [Concomitant]
  8. LEXAPRO [Concomitant]
  9. ADVAIR DISKUS 100/50 [Concomitant]
  10. ALBUTEROL [Concomitant]
  11. ACETAMINOPHEN [Concomitant]
  12. AMBIEN [Concomitant]
  13. COMPAZINE [Concomitant]
  14. OCEAN NASAL SPRAY [Concomitant]
  15. DARVOCET [Concomitant]
  16. ATIVAN [Concomitant]
  17. ELAVIL [Concomitant]

REACTIONS (11)
  - ANXIETY [None]
  - APATHY [None]
  - CONDITION AGGRAVATED [None]
  - DEPRESSION [None]
  - DYSPNOEA [None]
  - HAEMORRHAGE [None]
  - HEADACHE [None]
  - LABORATORY TEST ABNORMAL [None]
  - LOSS OF CONSCIOUSNESS [None]
  - NAUSEA [None]
  - RESPIRATORY ARREST [None]
